FAERS Safety Report 9405678 (Version 2)
Quarter: 2013Q3

REPORT INFORMATION
  Report Type: Report from Study
  Country: CA (occurrence: CA)
  Receive Date: 20130717
  Receipt Date: 20130829
  Transmission Date: 20140515
  Serious: Yes (Death)
  Sender: FDA-Public Use
  Company Number: CA-ABBOTT-13P-028-1121296-00

PATIENT
  Sex: Female
  Weight: 101.3 kg

DRUGS (5)
  1. HUMIRA [Suspect]
     Indication: PSORIATIC ARTHROPATHY
     Route: 058
     Dates: start: 20120831, end: 201304
  2. METHOTREXATE [Concomitant]
     Dates: start: 2008, end: 201304
  3. ADALAT XL [Concomitant]
  4. ATENOLOL [Concomitant]
  5. COVERSYL [Concomitant]

REACTIONS (6)
  - Abdominal pain [Fatal]
  - Blood creatinine increased [Fatal]
  - Transitional cell carcinoma [Fatal]
  - Metastases to retroperitoneum [Fatal]
  - Metastases to liver [Fatal]
  - Metastases to lung [Fatal]
